FAERS Safety Report 10043653 (Version 1)
Quarter: 2014Q1

REPORT INFORMATION
  Report Type: Spontaneous
  Country: US (occurrence: US)
  Receive Date: 20140328
  Receipt Date: 20140328
  Transmission Date: 20141002
  Serious: No
  Sender: FDA-Public Use
  Company Number: US-MYLANLABS-2014S1000629

PATIENT
  Age: 74 Year
  Sex: Female
  Weight: 89.81 kg

DRUGS (1)
  1. VERAPAMIL HYDROCHLORIDE [Suspect]
     Indication: BLOOD PRESSURE INCREASED
     Dates: start: 201311

REACTIONS (2)
  - Drug ineffective [Not Recovered/Not Resolved]
  - Unevaluable event [Not Recovered/Not Resolved]
